FAERS Safety Report 13281328 (Version 1)
Quarter: 2017Q1

REPORT INFORMATION
  Report Type: Spontaneous
  Country: US (occurrence: US)
  Receive Date: 20170228
  Receipt Date: 20170228
  Transmission Date: 20170428
  Serious: No
  Sender: FDA-Public Use
  Company Number: None

PATIENT
  Age: 16 Month
  Sex: Female
  Weight: 8.1 kg

DRUGS (1)
  1. MIRALAX [Suspect]
     Active Substance: POLYETHYLENE GLYCOL 3350
     Indication: CONSTIPATION
     Dosage: ?          QUANTITY:2 CAPFULS;?EVERY 6 HOURS ORAL
     Route: 048
     Dates: start: 20160401, end: 20170222

REACTIONS (3)
  - Diarrhoea [None]
  - Obsessive-compulsive disorder [None]
  - Abdominal pain [None]
